FAERS Safety Report 7705821-5 (Version None)
Quarter: 2011Q3

REPORT INFORMATION
  Report Type: 
  Country: None (occurrence: None)
  Receive Date: 20110824
  Receipt Date: 20110812
  Transmission Date: 20111222
  Serious: Yes (Other)
  Sender: FDA-Public Use
  Company Number: CA-ELI_LILLY_AND_COMPANY-CA201108004220

PATIENT
  Sex: Female

DRUGS (10)
  1. MULTI-VITAMIN [Concomitant]
  2. SPIRONOLACTONE [Concomitant]
  3. VITAMIN D [Concomitant]
     Indication: SCHIZOPHRENIA
  4. MODECATE [Concomitant]
  5. VALPROATE SODIUM [Concomitant]
  6. SEROQUEL [Concomitant]
  7. MAGNESIUM [Concomitant]
  8. ZYPREXA [Suspect]
     Dosage: 10 MG, UNKNOWN
  9. PROCYCLIDINE HYDROCHLORIDE 2MG TAB [Concomitant]
  10. CALCIUM CARBONATE [Concomitant]

REACTIONS (7)
  - HYPERLIPIDAEMIA [None]
  - HYPERGLYCAEMIA [None]
  - ATRIOVENTRICULAR BLOCK SECOND DEGREE [None]
  - WEIGHT INCREASED [None]
  - HYPERTENSION [None]
  - DIABETES MELLITUS [None]
  - BRONCHITIS [None]
